FAERS Safety Report 9838671 (Version 1)
Quarter: 2013Q4

REPORT INFORMATION
  Report Type: Spontaneous
  Country: US (occurrence: None)
  Receive Date: 20131206
  Receipt Date: 20131206
  Transmission Date: 20140711
  Serious: Yes (Hospitalization)
  Sender: FDA-Public Use
  Company Number: 387193

PATIENT
  Age: 50 Year
  Sex: Female
  Weight: 85.3 kg

DRUGS (2)
  1. NOVOLOG [Suspect]
     Indication: TYPE 2 DIABETES MELLITUS
     Dosage: 30 U, TID, SUBCUTANEOUS
     Route: 058
  2. LANTUS (INSULIN GLARGINE) [Suspect]
     Indication: TYPE 2 DIABETES MELLITUS
     Dosage: 50 U, QD, SUBCUTANEOUS
     Route: 058

REACTIONS (3)
  - Blood potassium decreased [None]
  - Weight increased [None]
  - Oedema peripheral [None]
